FAERS Safety Report 13730442 (Version 1)
Quarter: 2017Q3

REPORT INFORMATION
  Report Type: Spontaneous
  Country: US (occurrence: US)
  Receive Date: 20170707
  Receipt Date: 20170707
  Transmission Date: 20171127
  Serious: Yes (Hospitalization)
  Sender: FDA-Public Use
  Company Number: US-JNJFOC-20170409409

PATIENT
  Age: 42 Year
  Sex: Female

DRUGS (4)
  1. XARELTO [Suspect]
     Active Substance: RIVAROXABAN
     Indication: THROMBOSIS PROPHYLAXIS
     Dosage: 15 MG AND 20 MG AS DIFFERENT TIMES.
     Route: 048
     Dates: start: 20140624
  2. XARELTO [Suspect]
     Active Substance: RIVAROXABAN
     Indication: CEREBROVASCULAR ACCIDENT PROPHYLAXIS
     Dosage: 15 MG AND 20 MG AS DIFFERENT TIMES.
     Route: 048
     Dates: start: 20140624
  3. XARELTO [Suspect]
     Active Substance: RIVAROXABAN
     Indication: JUGULAR VEIN THROMBOSIS
     Dosage: 15 MG AND 20 MG AS DIFFERENT TIMES.
     Route: 048
     Dates: start: 20140624
  4. XARELTO [Suspect]
     Active Substance: RIVAROXABAN
     Indication: ATRIAL FIBRILLATION
     Dosage: 15 MG AND 20 MG AS DIFFERENT TIMES.
     Route: 048
     Dates: start: 20140624

REACTIONS (1)
  - Lower gastrointestinal haemorrhage [Recovering/Resolving]

NARRATIVE: CASE EVENT DATE: 20160915
